FAERS Safety Report 5104651-0 (Version None)
Quarter: 2006Q3

REPORT INFORMATION
  Report Type: 
  Country: None (occurrence: None)
  Receive Date: 20060914
  Receipt Date: 20060707
  Transmission Date: 20061208
  Serious: Yes (Hospitalization)
  Sender: FDA-Public Use
  Company Number: US-AMGEN-KDL185550

PATIENT
  Age: 65 Year
  Sex: Female

DRUGS (7)
  1. ARANESP [Suspect]
     Indication: RENAL FAILURE CHRONIC
     Dates: start: 20060705
  2. IMDUR [Concomitant]
  3. ZOCOR [Concomitant]
  4. PREVACID [Concomitant]
  5. PLAVIX [Concomitant]
  6. INSULIN [Concomitant]
  7. NORVASC [Concomitant]

REACTIONS (5)
  - ABDOMINAL PAIN [None]
  - DIZZINESS [None]
  - HEADACHE [None]
  - HOSPITALISATION [None]
  - NAUSEA [None]
